FAERS Safety Report 9019383 (Version 2)
Quarter: 2013Q2

REPORT INFORMATION
  Report Type: Spontaneous
  Country: MX (occurrence: MX)
  Receive Date: 20130118
  Receipt Date: 20130604
  Transmission Date: 20140414
  Serious: Yes (Hospitalization, Other)
  Sender: FDA-Public Use
  Company Number: MX-ELI_LILLY_AND_COMPANY-MX201206003301

PATIENT
  Age: 57 Year
  Sex: Female
  Weight: 60 kg

DRUGS (4)
  1. FORTEO [Suspect]
     Indication: OSTEOPOROSIS
     Dosage: UNK, QD
     Route: 058
     Dates: start: 20120607, end: 20121101
  2. METHOTREXATE [Concomitant]
     Dosage: UNK, UNKNOWN
     Route: 065
  3. DEFLAZACORT [Concomitant]
     Dosage: UNK, UNKNOWN
     Route: 065
  4. CELECOXIB [Concomitant]
     Dosage: UNK, UNKNOWN
     Route: 065

REACTIONS (8)
  - Rib fracture [Recovered/Resolved]
  - Accident [Recovered/Resolved]
  - Dizziness [Not Recovered/Not Resolved]
  - Pharyngeal disorder [Recovered/Resolved]
  - Fatigue [Not Recovered/Not Resolved]
  - Intentional drug misuse [Unknown]
  - Foot fracture [Not Recovered/Not Resolved]
  - Nausea [Recovered/Resolved]
